FAERS Safety Report 14994028 (Version 1)
Quarter: 2018Q2

REPORT INFORMATION
  Report Type: Spontaneous
  Country: ES (occurrence: ES)
  Receive Date: 20180611
  Receipt Date: 20180611
  Transmission Date: 20180711
  Serious: Yes (Hospitalization)
  Sender: FDA-Public Use
  Company Number: ES-TEVA-2018-ES-905581

PATIENT
  Age: 48 Year
  Sex: Female

DRUGS (2)
  1. AMOXICILLIN W/CLAVULANIC ACID [Suspect]
     Active Substance: AMOXICILLIN\CLAVULANIC ACID
     Dosage: AMOXICILLIN - CLAVULANIC 1000MG /?: 1 COMPRESSED EVERY 8 HOURS
     Dates: start: 20180401, end: 20180403
  2. DOGMATIL 50 MG CAPSULAS DURAS , 30 C?PSULAS [Suspect]
     Active Substance: SULPIRIDE
     Indication: VERTIGO
     Dosage: 1 TABLET EVERY 8 HOURS
     Route: 048
     Dates: start: 20180322, end: 20180409

REACTIONS (2)
  - Stevens-Johnson syndrome [Recovering/Resolving]
  - Hepatitis cholestatic [Recovering/Resolving]

NARRATIVE: CASE EVENT DATE: 20180403
